FAERS Safety Report 8415591-3 (Version None)
Quarter: 2012Q2

REPORT INFORMATION
  Report Type: 
  Country: None (occurrence: None)
  Receive Date: 20120606
  Receipt Date: 20120531
  Transmission Date: 20120825
  Serious: Yes (Hospitalization)
  Sender: FDA-Public Use
  Company Number: US-B.I. PHARMACEUTICALS,INC./RIDGEFIELD-2012-BP-12804BP

PATIENT
  Sex: Male

DRUGS (5)
  1. ALLOPURINOL [Concomitant]
     Indication: GOUT
  2. DOXAZOSIN [Concomitant]
     Indication: PROSTATOMEGALY
  3. LISINOPRIL [Concomitant]
     Indication: HYPERTENSION
  4. PRADAXA [Suspect]
     Indication: ATRIAL FIBRILLATION
     Dosage: 300 MG
     Route: 048
     Dates: start: 20120510, end: 20120524
  5. METOPROLOL TARTRATE [Concomitant]
     Indication: ATRIAL FIBRILLATION

REACTIONS (3)
  - PERICARDIAL EFFUSION [None]
  - HAEMOTHORAX [None]
  - GASTROINTESTINAL HAEMORRHAGE [None]
